FAERS Safety Report 13239215 (Version 1)
Quarter: 2017Q1

REPORT INFORMATION
  Report Type: Spontaneous
  Country: US (occurrence: US)
  Receive Date: 20170216
  Receipt Date: 20170216
  Transmission Date: 20170428
  Serious: Yes (Other)
  Sender: FDA-Public Use
  Company Number: US-PFIZER INC-2016104360

PATIENT
  Age: 62 Year
  Sex: Male
  Weight: 140.1 kg

DRUGS (2)
  1. REVATIO [Suspect]
     Active Substance: SILDENAFIL CITRATE
     Indication: BENIGN PROSTATIC HYPERPLASIA
  2. REVATIO [Suspect]
     Active Substance: SILDENAFIL CITRATE
     Indication: URINARY RETENTION
     Dosage: 20 MG, 1X/DAY
     Route: 048

REACTIONS (2)
  - Product use issue [Unknown]
  - Soft tissue necrosis [Unknown]
